FAERS Safety Report 5456162-0 (Version None)
Quarter: 2007Q3

REPORT INFORMATION
  Report Type: 
  Country: None (occurrence: None)
  Receive Date: 20070918
  Receipt Date: 20070702
  Transmission Date: 20080115
  Serious: No
  Sender: FDA-Public Use
  Company Number: US-ASTRAZENECA-2006UW23685

PATIENT
  Age: 20302 Day
  Sex: Female
  Weight: 101.4 kg

DRUGS (1)
  1. SEROQUEL [Suspect]
     Indication: INSOMNIA
     Dates: start: 20030920, end: 20040208

REACTIONS (3)
  - DIABETES MELLITUS [None]
  - FALL [None]
  - HAND FRACTURE [None]
